FAERS Safety Report 11054537 (Version 1)
Quarter: 2015Q2

REPORT INFORMATION
  Report Type: Spontaneous
  Country: US (occurrence: None)
  Receive Date: 20150420
  Receipt Date: 20150420
  Transmission Date: 20150821
  Serious: Yes (Other)
  Sender: FDA-Public Use
  Company Number: 2826751

PATIENT
  Age: 66 Year
  Sex: Male
  Weight: 73 kg

DRUGS (3)
  1. CYTARABINE INJECTION (CYTARABINE) [Suspect]
     Active Substance: CYTARABINE
     Indication: ACUTE MYELOID LEUKAEMIA
     Dosage: 190 MG MILLIGRAM(S), 1 DAY
     Route: 042
     Dates: start: 20150126, end: 20150128
  2. INVESTIGATIONAL DRUG [Suspect]
     Active Substance: INVESTIGATIONAL PRODUCT
     Indication: ACUTE MYELOID LEUKAEMIA
     Dosage: 40 MG MILLIGRAM(S), 1 DAY
     Route: 048
     Dates: start: 20150126, end: 20150219
  3. IDARUBICIN [Suspect]
     Active Substance: IDARUBICIN
     Indication: ACUTE MYELOID LEUKAEMIA
     Dosage: 23 MG MILLIGRAM(S), 1 DAY
     Route: 042
     Dates: start: 20150126, end: 20150201

REACTIONS (4)
  - Enterococcus test positive [None]
  - Ejection fraction decreased [None]
  - Myocarditis [None]
  - Stress cardiomyopathy [None]

NARRATIVE: CASE EVENT DATE: 20150219
